FAERS Safety Report 8912839 (Version 3)
Quarter: 2013Q1

REPORT INFORMATION
  Report Type: Spontaneous
  Country: JP (occurrence: JP)
  Receive Date: 20121116
  Receipt Date: 20130306
  Transmission Date: 20140127
  Serious: Yes (Other)
  Sender: FDA-Public Use
  Company Number: JP-ROCHE-1155933

PATIENT
  Age: 6 Year
  Sex: Female
  Weight: 17 kg

DRUGS (3)
  1. DORMICUM [Suspect]
     Indication: SEDATION
     Route: 042
  2. PROPOFOL [Concomitant]
     Indication: MAINTENANCE OF ANAESTHESIA
     Dosage: 10 ML PER HOUR
     Route: 065
  3. NITROUS OXIDE [Concomitant]
     Indication: SEDATIVE THERAPY
     Route: 065

REACTIONS (1)
  - Respiration abnormal [Unknown]
